FAERS Safety Report 15490997 (Version 1)
Quarter: 2018Q4

REPORT INFORMATION
  Report Type: Spontaneous
  Country: US (occurrence: US)
  Receive Date: 20181012
  Receipt Date: 20181012
  Transmission Date: 20190205
  Serious: No
  Sender: FDA-Public Use
  Company Number: US-BION-006986

PATIENT
  Age: 50 Year
  Sex: Female
  Weight: 77.11 kg

DRUGS (7)
  1. NICOTINE. [Concomitant]
     Active Substance: NICOTINE
     Indication: SMOKING CESSATION THERAPY
     Dosage: STRENGTH: 21 MG
  2. AMFETAMINE [Concomitant]
     Active Substance: AMPHETAMINE
     Indication: THYROID PAIN
     Dosage: 30 MG AS NEEDED OR TWICE DAILY
  3. SYNTHROID [Concomitant]
     Active Substance: LEVOTHYROXINE SODIUM
     Indication: THYROID DISORDER
  4. QUAZEPAM. [Concomitant]
     Active Substance: QUAZEPAM
     Dosage: IN THE MORNING AND NIGHT
  5. ESTRADIOL. [Concomitant]
     Active Substance: ESTRADIOL
  6. PROGESTERONE. [Suspect]
     Active Substance: PROGESTERONE
     Indication: PRODUCT USED FOR UNKNOWN INDICATION
  7. TRAZODONE [Concomitant]
     Active Substance: TRAZODONE HYDROCHLORIDE
     Indication: SOMNOLENCE

REACTIONS (2)
  - Hot flush [Unknown]
  - Swelling [Unknown]
